FAERS Safety Report 25499807 (Version 1)
Quarter: 2025Q2

REPORT INFORMATION
  Report Type: Spontaneous
  Country: US (occurrence: None)
  Receive Date: 20250630
  Receipt Date: 20250630
  Transmission Date: 20250716
  Serious: Yes (Hospitalization)
  Sender: FDA-CTU
  Company Number: None

PATIENT
  Age: 32 Year
  Sex: Female
  Weight: 76.05 kg

DRUGS (6)
  1. GAMMAKED [Suspect]
     Active Substance: HUMAN IMMUNOGLOBULIN G
     Indication: Polyneuropathy
     Dosage: OTHER FREQUENCY : EVERY WEEK;?
     Route: 042
     Dates: start: 20250625, end: 20250625
  2. GAMMAKED [Suspect]
     Active Substance: HUMAN IMMUNOGLOBULIN G
     Indication: Polyneuropathy
     Dosage: OTHER FREQUENCY : EVERY WEEK;?
     Route: 042
     Dates: start: 20250625, end: 20250625
  3. TYLENOL [Suspect]
     Active Substance: ACETAMINOPHEN
  4. Sodium Chloride 1000ml [Concomitant]
  5. Sodium Chloride 500ml [Concomitant]
  6. METHYLPREDNISOLONE SODIUM SUCCINATE [Concomitant]
     Active Substance: METHYLPREDNISOLONE SODIUM SUCCINATE

REACTIONS (7)
  - Nausea [None]
  - Pain in extremity [None]
  - Back pain [None]
  - Infusion related reaction [None]
  - Vomiting [None]
  - Chills [None]
  - Product contamination [None]

NARRATIVE: CASE EVENT DATE: 20250625
